FAERS Safety Report 24678381 (Version 2)
Quarter: 2024Q4

REPORT INFORMATION
  Report Type: Spontaneous
  Country: FR (occurrence: FR)
  Receive Date: 20241129
  Receipt Date: 20241203
  Transmission Date: 20250115
  Serious: Yes (Other)
  Sender: SANOFI AVENTIS
  Company Number: FR-EMA-DD-20241017-7482715-103318

PATIENT
  Age: 49 Year
  Sex: Male

DRUGS (4)
  1. PREDNISONE [Suspect]
     Active Substance: PREDNISONE
     Indication: Renal transplant
     Dosage: UNK
  2. ANTI-THYMOCYTE GLOBULIN (RABBIT) NOS [Suspect]
     Active Substance: LAPINE T-LYMPHOCYTE IMMUNE GLOBULIN
     Indication: Renal transplant
     Dosage: UNK
  3. CELLCEPT [Suspect]
     Active Substance: MYCOPHENOLATE MOFETIL
     Indication: Renal transplant
     Dosage: UNK
  4. TACROLIMUS [Suspect]
     Active Substance: TACROLIMUS
     Indication: Renal transplant
     Dosage: UNK

REACTIONS (5)
  - Plasma cell myeloma [Recovering/Resolving]
  - Bence Jones proteinuria [Recovering/Resolving]
  - Hyperviscosity syndrome [Unknown]
  - Renal transplant failure [Unknown]
  - Chronic allograft nephropathy [Unknown]

NARRATIVE: CASE EVENT DATE: 20110101
